FAERS Safety Report 5656223-7 (Version None)
Quarter: 2008Q1

REPORT INFORMATION
  Report Type: 
  Country: None (occurrence: None)
  Receive Date: 20080305
  Receipt Date: 20080218
  Transmission Date: 20080703
  Serious: Yes (Life-Threatening)
  Sender: FDA-Public Use
  Company Number: 2007JP002227

PATIENT
  Age: 18 Year
  Sex: Female
  Weight: 50 kg

DRUGS (20)
  1. TACROLIMUS [Suspect]
     Dosage: 2 MG, UID/QD, ORAL; 1 MG, ORAL; 2 MG, ORAL
     Route: 048
     Dates: start: 20070411, end: 20070513
  2. TACROLIMUS [Suspect]
     Dosage: 2 MG, UID/QD, ORAL; 1 MG, ORAL; 2 MG, ORAL
     Route: 048
     Dates: start: 20070820, end: 20070918
  3. TACROLIMUS [Suspect]
     Dosage: 2 MG, UID/QD, ORAL; 1 MG, ORAL; 2 MG, ORAL
     Route: 048
     Dates: start: 20070919
  4. PREDNISOLONE [Suspect]
     Dosage: 11.25 MG, BID, ORAL; 20 MG, ORAL; 17.5 MG, ORAL; 15 MG, ORAL; 12.5 MG, ORAL; 10 MG, ORAL
     Route: 048
     Dates: start: 20020901, end: 20070610
  5. PREDNISOLONE [Suspect]
     Dosage: 11.25 MG, BID, ORAL; 20 MG, ORAL; 17.5 MG, ORAL; 15 MG, ORAL; 12.5 MG, ORAL; 10 MG, ORAL
     Route: 048
     Dates: start: 20070611, end: 20070624
  6. PREDNISOLONE [Suspect]
     Dosage: 11.25 MG, BID, ORAL; 20 MG, ORAL; 17.5 MG, ORAL; 15 MG, ORAL; 12.5 MG, ORAL; 10 MG, ORAL
     Route: 048
     Dates: start: 20070625, end: 20070708
  7. PREDNISOLONE [Suspect]
     Dosage: 11.25 MG, BID, ORAL; 20 MG, ORAL; 17.5 MG, ORAL; 15 MG, ORAL; 12.5 MG, ORAL; 10 MG, ORAL
     Route: 048
     Dates: start: 20070709, end: 20070819
  8. PREDNISOLONE [Suspect]
     Dosage: 11.25 MG, BID, ORAL; 20 MG, ORAL; 17.5 MG, ORAL; 15 MG, ORAL; 12.5 MG, ORAL; 10 MG, ORAL
     Route: 048
     Dates: start: 20070820, end: 20070918
  9. PREDNISOLONE [Suspect]
     Dosage: 11.25 MG, BID, ORAL; 20 MG, ORAL; 17.5 MG, ORAL; 15 MG, ORAL; 12.5 MG, ORAL; 10 MG, ORAL
     Route: 048
     Dates: start: 20070919
  10. WARFARIN (WARFARIN) TABLET [Concomitant]
  11. AMLODIN (AMLODIPINE BESILATE) CONTROLLED RELEASE TABLET [Concomitant]
  12. LUPRAC (TORASEMIDE) TABLET [Concomitant]
  13. ONEALFA (ALFACALCIDOL) TABLET [Concomitant]
  14. FERROMIA (FERROUS CITRATE) TABLET [Concomitant]
  15. BEZATOL (BEZAFIBRATE) TABLET [Concomitant]
  16. PARIET (RABEPRAZOLE SODIUM) TABLET [Concomitant]
  17. PERSANTIN (DIPYRIDAMOLE) TABLET [Concomitant]
  18. ISCOTIN (ISONIAZID) TABLET [Concomitant]
  19. PYDOXAL TABLET [Concomitant]
  20. DOXAZOSIN MESYLATE [Concomitant]

REACTIONS (4)
  - BACK PAIN [None]
  - CONDITION AGGRAVATED [None]
  - LUPUS NEPHRITIS [None]
  - VARICELLA [None]
